FAERS Safety Report 23937277 (Version 1)
Quarter: 2024Q2

REPORT INFORMATION
  Report Type: Spontaneous
  Country: US (occurrence: US)
  Receive Date: 20240604
  Receipt Date: 20240604
  Transmission Date: 20240716
  Serious: Yes (Life-Threatening, Hospitalization)
  Sender: FDA-Public Use
  Company Number: US-MYLANLABS-2024M1050344

PATIENT
  Age: 17 Year
  Sex: Female

DRUGS (1)
  1. AMLODIPINE [Suspect]
     Active Substance: AMLODIPINE BESYLATE
     Indication: Product used for unknown indication
     Dosage: 200 MILLIGRAM, INTENTIONALLY INGESTED 200MG
     Route: 048

REACTIONS (4)
  - Hypoglycaemia [Recovering/Resolving]
  - Shock [Recovering/Resolving]
  - Intentional product misuse [Recovering/Resolving]
  - Intentional overdose [Recovering/Resolving]
